FAERS Safety Report 9120148 (Version 1)
Quarter: 2013Q1

REPORT INFORMATION
  Report Type: Spontaneous
  Country: US (occurrence: US)
  Receive Date: 20130226
  Receipt Date: 20130226
  Transmission Date: 20140127
  Serious: Yes (Hospitalization)
  Sender: FDA-Public Use
  Company Number: US-JNJFOC-20130212137

PATIENT
  Age: 7 Decade
  Sex: Female

DRUGS (1)
  1. BENADRYL TOPICAL EXTRA STRENGTH [Suspect]
     Indication: URTICARIA
     Dosage: ENTIRE TUBE AT ONE TIME
     Route: 061
     Dates: start: 20130214

REACTIONS (3)
  - Loss of consciousness [Recovered/Resolved]
  - Medication error [Recovered/Resolved]
  - Urticaria [Not Recovered/Not Resolved]
